FAERS Safety Report 9988899 (Version 1)
Quarter: 2014Q1

REPORT INFORMATION
  Report Type: Report from Study
  Country: US (occurrence: US)
  Receive Date: 20140310
  Receipt Date: 20140310
  Transmission Date: 20141002
  Serious: No
  Sender: FDA-Public Use
  Company Number: US-ABBVIE-13P-163-1128974-00

PATIENT
  Age: 63 Year
  Sex: Female

DRUGS (13)
  1. HUMIRA [Suspect]
     Indication: PSORIASIS
     Dates: start: 20130219
  2. HYDROCODONE WITH ACETAMINOPHEN [Concomitant]
     Indication: FIBROMYALGIA
     Dosage: 10/325
  3. HYDROCODONE WITH ACETAMINOPHEN [Concomitant]
     Indication: PAIN
  4. TRAMADOL [Concomitant]
     Indication: FIBROMYALGIA
  5. LYRICA [Concomitant]
     Indication: FIBROMYALGIA
  6. LYRICA [Concomitant]
     Indication: PAIN
  7. CYCLOBENZAPRINE [Concomitant]
     Indication: TEMPOROMANDIBULAR JOINT SYNDROME
     Dosage: 10MG AS REQUIRED
  8. WELLBUTRIN [Concomitant]
     Indication: DEPRESSION
  9. NORVASC [Concomitant]
     Indication: HYPERTENSION
     Dosage: 5 MG DAILY
  10. ATENOLOL [Concomitant]
     Indication: HYPERTENSION
  11. CLONAZEPAM [Concomitant]
     Indication: PRODUCT USED FOR UNKNOWN INDICATION
  12. KLONOPIN [Concomitant]
     Indication: PRODUCT USED FOR UNKNOWN INDICATION
  13. PRAVASTATIN [Concomitant]
     Indication: PRODUCT USED FOR UNKNOWN INDICATION

REACTIONS (4)
  - Anxiety [Recovering/Resolving]
  - Insomnia [Recovering/Resolving]
  - Psoriasis [Not Recovered/Not Resolved]
  - Blood cholesterol increased [Not Recovered/Not Resolved]
